FAERS Safety Report 13801850 (Version 3)
Quarter: 2017Q3

REPORT INFORMATION
  Report Type: Spontaneous
  Country: GB (occurrence: GB)
  Receive Date: 20170727
  Receipt Date: 20170831
  Transmission Date: 20171127
  Serious: Yes (Hospitalization, Other)
  Sender: FDA-Public Use
  Company Number: GB-ROCHE-1967523

PATIENT
  Age: 81 Year
  Sex: Male

DRUGS (1)
  1. GAZYVARO [Suspect]
     Active Substance: OBINUTUZUMAB
     Indication: CHRONIC LYMPHOCYTIC LEUKAEMIA
     Dosage: CYCLE 1, DAY 1, BAG 1(100MG)
     Route: 042

REACTIONS (6)
  - Chest discomfort [Unknown]
  - Febrile neutropenia [Unknown]
  - Dysuria [Unknown]
  - Nausea [Unknown]
  - Somnolence [Unknown]
  - Chills [Unknown]

NARRATIVE: CASE EVENT DATE: 20170724
